FAERS Safety Report 5003990-1 (Version None)
Quarter: 2006Q2

REPORT INFORMATION
  Report Type: 
  Country: None (occurrence: None)
  Receive Date: 20060517
  Receipt Date: 20060509
  Transmission Date: 20061013
  Serious: Yes (Other)
  Sender: FDA-Public Use
  Company Number: US-JNJFOC-20060502158

PATIENT
  Sex: Female

DRUGS (8)
  1. REMICADE [Suspect]
     Indication: CROHN'S DISEASE
     Dosage: DOSE: ONCE EVERY 6 TO 8 WEEKS
     Route: 042
  2. DARVOCET [Concomitant]
  3. DARVOCET [Concomitant]
  4. IMURAN [Concomitant]
  5. SYNTHROID [Concomitant]
  6. ALLEGRA [Concomitant]
  7. EFFEXOR [Concomitant]
  8. NIFEREX [Concomitant]

REACTIONS (2)
  - ARTHRITIS [None]
  - SYSTEMIC LUPUS ERYTHEMATOSUS [None]
